FAERS Safety Report 14999149 (Version 1)
Quarter: 2018Q2

REPORT INFORMATION
  Report Type: Spontaneous
  Country: US (occurrence: US)
  Receive Date: 20180522
  Receipt Date: 20180522
  Transmission Date: 20180711
  Serious: Yes (Life-Threatening, Disabling)
  Sender: FDA-Public Use
  Company Number: None

PATIENT
  Age: 49 Year
  Sex: Female
  Weight: 47.25 kg

DRUGS (4)
  1. GABAPENTIN. [Concomitant]
     Active Substance: GABAPENTIN
  2. LORAZEPAM. [Suspect]
     Active Substance: LORAZEPAM
     Indication: INSOMNIA
     Dosage: ?          QUANTITY:1 TABLET(S);?
     Route: 048
     Dates: start: 20170518, end: 20180522
  3. BIRTHCONTROL [Concomitant]
  4. CLONIDINE. [Concomitant]
     Active Substance: CLONIDINE

REACTIONS (7)
  - Inappropriate schedule of drug administration [None]
  - Loss of personal independence in daily activities [None]
  - Pain [None]
  - Drug dependence [None]
  - Drug withdrawal syndrome [None]
  - Panic attack [None]
  - Cerebral disorder [None]

NARRATIVE: CASE EVENT DATE: 20180124
